FAERS Safety Report 8744707 (Version 2)
Quarter: 2012Q4

REPORT INFORMATION
  Report Type: 
  Country: US (occurrence: US)
  Receive Date: 20120825
  Receipt Date: 20120830
  Transmission Date: 20130627
  Serious: No
  Sender: FDA-Public Use
  Company Number: US-B.I. PHARMACEUTICALS,INC./RIDGEFIELD-2012-BP-20276BP

PATIENT
  Age: 71 None
  Sex: Female

DRUGS (15)
  1. SPIRIVA [Suspect]
     Indication: EMPHYSEMA
     Dosage: 18 mcg
     Route: 055
     Dates: start: 2007
  2. SPIRIVA [Suspect]
     Route: 048
     Dates: start: 201206, end: 201206
  3. COMBIVENT [Concomitant]
     Indication: EMPHYSEMA
     Route: 055
     Dates: start: 201207
  4. METFORMIN [Concomitant]
     Indication: DIABETES MELLITUS
     Dosage: 2000 mg
     Route: 048
     Dates: start: 2007
  5. ENALAPRIL [Concomitant]
     Indication: HYPERTENSION
     Dosage: 10 mg
     Route: 048
     Dates: start: 2007
  6. OMEPRAZOLE [Concomitant]
     Indication: GASTRIC ULCER
     Route: 048
     Dates: start: 2002
  7. PREVASTATIN [Concomitant]
     Indication: BLOOD CHOLESTEROL INCREASED
     Dosage: 10 mg
     Route: 048
     Dates: start: 2007
  8. ACELOVIR [Concomitant]
     Indication: HERPES VIRUS INFECTION
     Dosage: 400 mg
     Route: 048
     Dates: start: 2007
  9. METHOTREXATE [Concomitant]
     Indication: RHEUMATOID ARTHRITIS
     Dosage: 10 mg
     Route: 048
     Dates: start: 2007
  10. FOLIC ACID [Concomitant]
     Dosage: 1 mg
     Route: 048
     Dates: start: 2007
  11. ULTRACET [Concomitant]
     Indication: BACK PAIN
     Dosage: 325 mg
     Route: 048
  12. GLIPIZIDE [Concomitant]
     Indication: DIABETES MELLITUS
     Dosage: 5 mg
     Route: 048
     Dates: start: 201108
  13. HUMIRA [Concomitant]
     Indication: RHEUMATOID ARTHRITIS
     Route: 058
     Dates: start: 2002
  14. COSOPT [Concomitant]
     Indication: GLAUCOMA
     Dates: start: 2002
  15. CALCIUM D [Concomitant]
     Indication: BONE DISORDER
     Dosage: 500 mg
     Route: 048
     Dates: start: 1992

REACTIONS (2)
  - Cystitis [Recovered/Resolved]
  - Incorrect route of drug administration [Recovered/Resolved]
